FAERS Safety Report 7605092-4 (Version None)
Quarter: 2011Q3

REPORT INFORMATION
  Report Type: 
  Country: None (occurrence: None)
  Receive Date: 20110713
  Receipt Date: 20101027
  Transmission Date: 20111222
  Serious: Yes (Death, Other)
  Sender: FDA-Public Use
  Company Number: US-BAYER-201011422NA

PATIENT
  Age: 73 Year
  Sex: Male
  Weight: 95 kg

DRUGS (3)
  1. TRASYLOL [Suspect]
     Indication: HEART VALVE REPLACEMENT
     Route: 042
     Dates: start: 19940201
  2. TRASYLOL [Suspect]
     Indication: CORONARY ARTERY BYPASS
  3. TRASYLOL [Suspect]
     Indication: AORTIC VALVE REPLACEMENT

REACTIONS (14)
  - CARDIAC DISORDER [None]
  - ORGAN FAILURE [None]
  - DEPRESSION [None]
  - FEAR [None]
  - DEATH [None]
  - ANXIETY [None]
  - UNEVALUABLE EVENT [None]
  - RENAL IMPAIRMENT [None]
  - RENAL INJURY [None]
  - INJURY [None]
  - RENAL FAILURE [None]
  - CEREBROVASCULAR ACCIDENT [None]
  - PAIN [None]
  - ANHEDONIA [None]
